FAERS Safety Report 16011936 (Version 1)
Quarter: 2019Q1

REPORT INFORMATION
  Report Type: Spontaneous
  Country: US (occurrence: US)
  Receive Date: 20190227
  Receipt Date: 20190227
  Transmission Date: 20190418
  Serious: Yes (Other)
  Sender: FDA-Public Use
  Company Number: US-009507513-1902USA009518

PATIENT
  Sex: Female

DRUGS (2)
  1. ZOCOR [Suspect]
     Active Substance: SIMVASTATIN
     Dosage: FOR 30 DAYS
     Route: 048
  2. CLOPIDOGREL [Suspect]
     Active Substance: CLOPIDOGREL BISULFATE

REACTIONS (6)
  - Blister [Unknown]
  - Weight decreased [Unknown]
  - Rash [Unknown]
  - Product packaging issue [Unknown]
  - Wrong product administered [Unknown]
  - Ulcer [Unknown]
